FAERS Safety Report 17749806 (Version 3)
Quarter: 2021Q3

REPORT INFORMATION
  Report Type: Spontaneous
  Country: FR (occurrence: FR)
  Receive Date: 20200506
  Receipt Date: 20210728
  Transmission Date: 20211014
  Serious: Yes (Hospitalization, Other)
  Sender: FDA-Public Use
  Company Number: NVSC2020FR121698

PATIENT
  Age: 55 Year
  Sex: Female
  Weight: 60 kg

DRUGS (10)
  1. TACROLIMUS. [Suspect]
     Active Substance: TACROLIMUS
     Dosage: 5.5 MG, QD
     Route: 048
     Dates: start: 20170930
  2. CERTICAN [Concomitant]
     Active Substance: EVEROLIMUS
     Dosage: 4.25 MG, QD (TOTAL DAILY DOSE)
     Route: 065
     Dates: start: 20181004, end: 20181004
  3. CERTICAN [Concomitant]
     Active Substance: EVEROLIMUS
     Dosage: 4 MG, QD (TOTAL DAILY DOSE)
     Route: 065
     Dates: start: 20181005, end: 20181008
  4. CERTICAN [Concomitant]
     Active Substance: EVEROLIMUS
     Dosage: 4 MG, QD (TOTAL DAILY DOSE)
     Route: 065
     Dates: start: 20190228, end: 20190322
  5. CERTICAN [Concomitant]
     Active Substance: EVEROLIMUS
     Dosage: 4.5 MG, QD (TOTAL DAILY DOSE)
     Route: 065
     Dates: start: 20180310, end: 20181003
  6. CERTICAN [Concomitant]
     Active Substance: EVEROLIMUS
     Dosage: 3 MG, QD (TOTAL DAILY DOSE)
     Route: 065
     Dates: start: 20181009, end: 20181009
  7. TACROLIMUS. [Suspect]
     Active Substance: TACROLIMUS
     Indication: IMMUNOSUPPRESSION
     Dosage: UNK
     Route: 048
  8. CERTICAN [Concomitant]
     Active Substance: EVEROLIMUS
     Dosage: 2 MG, QD (TOTAL DAILY DOSE)
     Route: 065
     Dates: start: 20181010, end: 20181107
  9. CERTICAN [Concomitant]
     Active Substance: EVEROLIMUS
     Dosage: 2.5 MG (TOTAL DAILY DOSE)
     Route: 065
     Dates: start: 20181108, end: 20190227
  10. CERTICAN [Concomitant]
     Active Substance: EVEROLIMUS
     Indication: IMMUNOSUPPRESSION
     Dosage: 4 MG, QD (TOTAL DAILY DOSE)
     Route: 065
     Dates: start: 20171116, end: 20180309

REACTIONS (2)
  - Acute kidney injury [Recovered/Resolved]
  - Confusional state [Recovered/Resolved]

NARRATIVE: CASE EVENT DATE: 20190201
